FAERS Safety Report 4423769-9 (Version None)
Quarter: 2004Q3

REPORT INFORMATION
  Report Type: 
  Country: None (occurrence: None)
  Receive Date: 20040719
  Receipt Date: 20040423
  Transmission Date: 20050211
  Serious: No
  Sender: FDA-Public Use
  Company Number: A03200401272

PATIENT
  Age: 54 Year
  Sex: Male

DRUGS (2)
  1. UROXATRAL [Suspect]
     Indication: URINE OUTPUT INCREASED
     Dosage: 10 MG OD; ORAL
     Route: 048
     Dates: start: 20040421, end: 20040401
  2. FINASTERIDE [Concomitant]

REACTIONS (2)
  - DIZZINESS [None]
  - FLANK PAIN [None]
